FAERS Safety Report 15963218 (Version 1)
Quarter: 2019Q1

REPORT INFORMATION
  Report Type: Spontaneous
  Country: US (occurrence: US)
  Receive Date: 20190214
  Receipt Date: 20190214
  Transmission Date: 20190417
  Serious: Yes (Other)
  Sender: FDA-Public Use
  Company Number: US-AKORN PHARMACEUTICALS-2019AKN00210

PATIENT
  Sex: Male

DRUGS (1)
  1. MYORISAN [Suspect]
     Active Substance: ISOTRETINOIN
     Dosage: UNK
     Dates: start: 201602, end: 20160516

REACTIONS (9)
  - Blood testosterone decreased [Unknown]
  - Suicidal ideation [Unknown]
  - Unevaluable event [Unknown]
  - Dry skin [Unknown]
  - Flushing [Unknown]
  - White blood cell count decreased [Unknown]
  - Vision blurred [Unknown]
  - Fatigue [Unknown]
  - Hot flush [Unknown]
